FAERS Safety Report 17068177 (Version 1)
Quarter: 2019Q4

REPORT INFORMATION
  Report Type: Spontaneous
  Country: GB (occurrence: GB)
  Receive Date: 20191122
  Receipt Date: 20191122
  Transmission Date: 20200122
  Serious: Yes (Hospitalization)
  Sender: FDA-Public Use
  Company Number: GB-CANTON LABORATORIES, LLC-2077144

PATIENT
  Age: 27 Year
  Sex: Female

DRUGS (5)
  1. NAPROSYN [Suspect]
     Active Substance: NAPROXEN
     Indication: PRODUCT USED FOR UNKNOWN INDICATION
     Route: 048
  2. COLECALCIFEROL (COLECALCIFEROL) [Concomitant]
     Route: 048
  3. FOLIC ACID. [Concomitant]
     Active Substance: FOLIC ACID
     Route: 048
  4. CYCLIZINE (CYCLIZINE) [Suspect]
     Active Substance: CYCLIZINE
     Route: 048
  5. SALATAC (LACTIC ACID, SALICYCLIC ACID) [Concomitant]
     Route: 061

REACTIONS (5)
  - Maternal exposure during pregnancy [Unknown]
  - Skin exfoliation [Unknown]
  - Toxic epidermal necrolysis [Recovering/Resolving]
  - Rash vesicular [Unknown]
  - Stevens-Johnson syndrome [Recovered/Resolved]

NARRATIVE: CASE EVENT DATE: 20190919
